FAERS Safety Report 8469302-6 (Version None)
Quarter: 2012Q2

REPORT INFORMATION
  Report Type: 
  Country: None (occurrence: None)
  Receive Date: 20120626
  Receipt Date: 20120613
  Transmission Date: 20120825
  Serious: No
  Sender: FDA-Public Use
  Company Number: US-ASTRAZENECA-2012SE40001

PATIENT
  Age: 61 Year
  Sex: Female

DRUGS (1)
  1. ARIMIDEX [Suspect]
     Route: 048

REACTIONS (4)
  - ARTHRALGIA [None]
  - HOT FLUSH [None]
  - DRUG INTOLERANCE [None]
  - NEUROPATHY PERIPHERAL [None]
